FAERS Safety Report 8032698 (Version 3)
Quarter: 2013Q4

REPORT INFORMATION
  Report Type: Spontaneous
  Country: US (occurrence: US)
  Receive Date: 20110713
  Receipt Date: 20131031
  Transmission Date: 20140711
  Serious: Yes (Death)
  Sender: FDA-Public Use
  Company Number: US-PURDUE-USA-2011-0071468

PATIENT
  Age: 41 Year
  Sex: Male
  Weight: 107.94 kg

DRUGS (8)
  1. OXYCODONE HYDROCHLORIDE (SIMILAR TO NDA 20-553) [Suspect]
     Indication: PAIN
  2. OXYCONTIN TABLETS [Suspect]
     Indication: PAIN
  3. CARISOPRODOL [Suspect]
     Indication: PRODUCT USED FOR UNKNOWN INDICATION
  4. FENTANYL [Suspect]
     Indication: PRODUCT USED FOR UNKNOWN INDICATION
  5. METHADONE [Suspect]
     Indication: PRODUCT USED FOR UNKNOWN INDICATION
  6. MEPROBAMATE [Suspect]
     Indication: PRODUCT USED FOR UNKNOWN INDICATION
  7. OPANA [Suspect]
     Indication: PAIN
  8. ALPRAZOLAM [Suspect]
     Indication: PAIN

REACTIONS (1)
  - Overdose [Fatal]
